FAERS Safety Report 8889092 (Version 2)
Quarter: 2014Q2

REPORT INFORMATION
  Report Type: Spontaneous
  Country: US (occurrence: US)
  Receive Date: 20121106
  Receipt Date: 20140613
  Transmission Date: 20141212
  Serious: Yes (Disabling, Other)
  Sender: FDA-Public Use
  Company Number: US-009507513-1210USA012410

PATIENT
  Sex: Female

DRUGS (2)
  1. FOSAMAX [Suspect]
     Indication: STRESS FRACTURE
     Dosage: UNK, QD
     Route: 048
     Dates: start: 1995, end: 201006
  2. FOSAMAX [Suspect]
     Indication: FEMUR FRACTURE

REACTIONS (8)
  - Femur fracture [Unknown]
  - Joint dislocation [Unknown]
  - Intramedullary rod insertion [Unknown]
  - Arthritis [Not Recovered/Not Resolved]
  - Fibromyalgia [Unknown]
  - Colitis ulcerative [Unknown]
  - Patella fracture [Unknown]
  - Off label use [Unknown]
